FAERS Safety Report 13816342 (Version 4)
Quarter: 2017Q4

REPORT INFORMATION
  Report Type: Report from Study
  Country: US (occurrence: US)
  Receive Date: 20170731
  Receipt Date: 20171117
  Transmission Date: 20180320
  Serious: Yes (Other)
  Sender: FDA-Public Use
  Company Number: US-PURDUE-USA-2017-0140020

PATIENT
  Sex: Male

DRUGS (4)
  1. OXYCODONE HYDROCHLORIDE. [Suspect]
     Active Substance: OXYCODONE HYDROCHLORIDE
     Indication: NECK PAIN
     Dosage: 80 MG, BID
     Route: 048
     Dates: end: 201706
  2. OXYCODONE HYDROCHLORIDE. [Suspect]
     Active Substance: OXYCODONE HYDROCHLORIDE
     Indication: BACK PAIN
     Dosage: UNK
     Route: 048
     Dates: start: 1997
  3. OXYCODONE HYDROCHLORIDE. [Suspect]
     Active Substance: OXYCODONE HYDROCHLORIDE
     Indication: COMPLEX REGIONAL PAIN SYNDROME
  4. NEURONTIN [Concomitant]
     Active Substance: GABAPENTIN
     Indication: PRODUCT USED FOR UNKNOWN INDICATION
     Dosage: UNK
     Route: 065

REACTIONS (18)
  - Cellulitis [Unknown]
  - Unevaluable event [Recovered/Resolved]
  - Surgery [Unknown]
  - Spinal fusion surgery [Unknown]
  - Premenstrual syndrome [Unknown]
  - Cerebrospinal fluid leakage [Unknown]
  - Herpes zoster [Unknown]
  - Gastrointestinal disorder [Unknown]
  - Infection [Unknown]
  - Weight decreased [Unknown]
  - Off label use [Unknown]
  - Staphylococcal infection [Unknown]
  - Nerve injury [Unknown]
  - Cataract [Unknown]
  - Connective tissue disorder [Unknown]
  - Hypertension [Unknown]
  - Haematoma [Unknown]
  - Blood glucose abnormal [Unknown]
